FAERS Safety Report 14497936 (Version 1)
Quarter: 2018Q1

REPORT INFORMATION
  Report Type: Spontaneous
  Country: US (occurrence: US)
  Receive Date: 20180206
  Receipt Date: 20180206
  Transmission Date: 20180509
  Serious: Yes (Other)
  Sender: FDA-Public Use
  Company Number: None

PATIENT

DRUGS (2)
  1. CEPHALEXIN. [Suspect]
     Active Substance: CEPHALEXIN
  2. CEFTRIAXONE. [Suspect]
     Active Substance: CEFTRIAXONE

REACTIONS (4)
  - Urinary tract infection [None]
  - Asthenia [None]
  - Clostridium difficile colitis [None]
  - Dyspnoea [None]
